FAERS Safety Report 5674672-8 (Version None)
Quarter: 2008Q1

REPORT INFORMATION
  Report Type: 
  Country: None (occurrence: None)
  Receive Date: 20080320
  Receipt Date: 20080314
  Transmission Date: 20080703
  Serious: Yes (Other)
  Sender: FDA-Public Use
  Company Number: B0500116A

PATIENT
  Age: 2 Year
  Sex: Male

DRUGS (1)
  1. AUGMENTIN '125' [Suspect]
     Indication: UPPER RESPIRATORY TRACT INFECTION
     Dosage: 5ML TWICE PER DAY
     Route: 048

REACTIONS (2)
  - SERUM SICKNESS [None]
  - VASCULITIS [None]
